FAERS Safety Report 15719282 (Version 2)
Quarter: 2019Q3

REPORT INFORMATION
  Report Type: Report from Study
  Country: JP (occurrence: JP)
  Receive Date: 20181213
  Receipt Date: 20190702
  Transmission Date: 20191004
  Serious: Yes (Life-Threatening, Hospitalization, Other)
  Sender: FDA-Public Use
  Company Number: JP-TAKEDA-2018MPI017016

PATIENT
  Age: 82 Year
  Sex: Male
  Weight: 63 kg

DRUGS (9)
  1. ENDOXAN                            /00021101/ [Suspect]
     Active Substance: CYCLOPHOSPHAMIDE
     Indication: MANTLE CELL LYMPHOMA
     Dosage: 655 MILLIGRAM, Q3WEEKS
     Route: 042
     Dates: start: 20181030, end: 20181119
  2. PREDONINE [Suspect]
     Active Substance: PREDNISOLONE
     Indication: MANTLE CELL LYMPHOMA
     Dosage: UNK
     Route: 048
     Dates: start: 20181030, end: 2018
  3. BORTEZOMIB. [Suspect]
     Active Substance: BORTEZOMIB
     Indication: MANTLE CELL LYMPHOMA
     Dosage: 1.3 MILLIGRAM, QD
     Route: 058
     Dates: start: 20181030, end: 20181122
  4. DOXORUBICIN HYDROCHLORIDE. [Suspect]
     Active Substance: DOXORUBICIN HYDROCHLORIDE
     Indication: MANTLE CELL LYMPHOMA
     Dosage: 50 MILLIGRAM, Q3WEEKS
     Route: 042
     Dates: start: 20181030, end: 20181030
  5. DOXORUBICIN HYDROCHLORIDE. [Suspect]
     Active Substance: DOXORUBICIN HYDROCHLORIDE
     Dosage: 50 MILLIGRAM
     Route: 042
     Dates: start: 20181119, end: 20181119
  6. RITUXIMAB. [Concomitant]
     Active Substance: RITUXIMAB
     Indication: MANTLE CELL LYMPHOMA
     Dosage: UNK
     Route: 065
     Dates: start: 20181030, end: 2018
  7. FILGRASTIM BS [Concomitant]
     Active Substance: FILGRASTIM
     Indication: NEUTROPHIL COUNT DECREASED
     Dosage: 75 MICROGRAM, QD
     Route: 065
     Dates: start: 20181109, end: 20181112
  8. FILGRASTIM BS [Concomitant]
     Active Substance: FILGRASTIM
     Dosage: 150 MICROGRAM, QD
     Route: 065
     Dates: start: 20181127, end: 20181129
  9. TAZOPIP [Concomitant]
     Active Substance: PIPERACETAZINE\TAZOBACTAM
     Indication: ENTERITIS
     Dosage: 18 GRAM, QD
     Route: 065
     Dates: start: 20181126, end: 20181203

REACTIONS (5)
  - Enteritis [Recovered/Resolved]
  - Platelet count decreased [Recovering/Resolving]
  - Neutrophil count decreased [Recovering/Resolving]
  - Pneumonia [Unknown]
  - Bone marrow failure [Unknown]

NARRATIVE: CASE EVENT DATE: 2018
